FAERS Safety Report 11507583 (Version 1)
Quarter: 2015Q3

REPORT INFORMATION
  Report Type: Spontaneous
  Country: US (occurrence: US)
  Receive Date: 20150903
  Receipt Date: 20150903
  Transmission Date: 20151125
  Serious: No
  Sender: FDA-Public Use
  Company Number: US-ELI_LILLY_AND_COMPANY-US200908005426

PATIENT
  Sex: Male

DRUGS (5)
  1. AMARYL [Concomitant]
     Active Substance: GLIMEPIRIDE
  2. HUMALOG [Suspect]
     Active Substance: INSULIN LISPRO
  3. GLUCOPHAGE [Concomitant]
     Active Substance: METFORMIN HYDROCHLORIDE
  4. COREG [Concomitant]
     Active Substance: CARVEDILOL
  5. DIOVAN [Concomitant]
     Active Substance: VALSARTAN

REACTIONS (3)
  - Blood glucose increased [Recovered/Resolved]
  - Medication error [Unknown]
  - Abdominal discomfort [Unknown]

NARRATIVE: CASE EVENT DATE: 200906
